FAERS Safety Report 18354146 (Version 2)
Quarter: 2020Q4

REPORT INFORMATION
  Report Type: Report from Study
  Country: None (occurrence: GB)
  Receive Date: 20201006
  Receipt Date: 20201022
  Transmission Date: 20210114
  Serious: Yes (Hospitalization)
  Sender: FDA-Public Use
  Company Number: GB-ABBVIE-20K-167-3589060-00

PATIENT
  Age: 31 Year
  Sex: Female

DRUGS (4)
  1. HUMIRA [Suspect]
     Active Substance: ADALIMUMAB
     Dosage: DAY 29
     Route: 058
  2. HUMIRA [Suspect]
     Active Substance: ADALIMUMAB
     Dosage: DAY 15
     Route: 058
  3. HUMIRA [Suspect]
     Active Substance: ADALIMUMAB
     Route: 058
     Dates: start: 20200925, end: 20200925
  4. HUMIRA [Suspect]
     Active Substance: ADALIMUMAB
     Indication: HIDRADENITIS
     Dosage: DAY 1
     Route: 058

REACTIONS (11)
  - Swollen tongue [Unknown]
  - Vision blurred [Unknown]
  - Fatigue [Unknown]
  - Hypersensitivity [Unknown]
  - Speech disorder [Unknown]
  - Feeling abnormal [Unknown]
  - Hemiplegia [Unknown]
  - Anaphylactic reaction [Unknown]
  - Dysarthria [Unknown]
  - Stiff tongue [Unknown]
  - Dizziness [Unknown]

NARRATIVE: CASE EVENT DATE: 2020
